FAERS Safety Report 4675267-5 (Version None)
Quarter: 2005Q2

REPORT INFORMATION
  Report Type: 
  Country: None (occurrence: None)
  Receive Date: 20050527
  Receipt Date: 20050519
  Transmission Date: 20051028
  Serious: Yes (Hospitalization)
  Sender: FDA-Public Use
  Company Number: US-JNJFOC-20050505397

PATIENT
  Sex: Female
  Weight: 56.7 kg

DRUGS (14)
  1. INFLIXIMAB [Suspect]
     Indication: RHEUMATOID ARTHRITIS
     Route: 042
  2. CALCIUM GLUCONATE [Concomitant]
  3. CARAFATE [Concomitant]
  4. COZAAR [Concomitant]
  5. ECOTRIN [Concomitant]
  6. FOLIC ACID [Concomitant]
  7. HUMIRA [Concomitant]
  8. INDAPAMIDE [Concomitant]
  9. K-DUR 10 [Concomitant]
  10. METHOTREXATE [Concomitant]
  11. PLAVIX [Concomitant]
  12. SPIRONOLACTONE [Concomitant]
  13. PROTONIX [Concomitant]
  14. LIPITOR [Concomitant]

REACTIONS (2)
  - GASTRIC NEOPLASM [None]
  - GASTRIC POLYPS [None]
